FAERS Safety Report 23631741 (Version 1)
Quarter: 2024Q1

REPORT INFORMATION
  Report Type: Spontaneous
  Country: US (occurrence: None)
  Receive Date: 20240313
  Receipt Date: 20240313
  Transmission Date: 20240410
  Serious: No
  Sender: FDA-Public Use
  Company Number: None

PATIENT
  Age: 77 Year
  Sex: Female

DRUGS (1)
  1. REPATHA [Suspect]
     Active Substance: EVOLOCUMAB
     Indication: Blood cholesterol
     Dates: start: 20240228, end: 20240228

REACTIONS (4)
  - Rash [None]
  - Pruritus [None]
  - Rash erythematous [None]
  - Rash papular [None]

NARRATIVE: CASE EVENT DATE: 20240228
